FAERS Safety Report 16661308 (Version 1)
Quarter: 2019Q3

REPORT INFORMATION
  Report Type: Spontaneous
  Country: US (occurrence: US)
  Receive Date: 20190619
  Receipt Date: 20190619
  Transmission Date: 20191004
  Serious: Yes (Hospitalization)
  Sender: FDA-Public Use
  Company Number: None

PATIENT
  Age: 72 Year
  Sex: Male
  Weight: 88 kg

DRUGS (2)
  1. CODEINE/GUAIFENESIN [Suspect]
     Active Substance: CODEINE\GUAIFENESIN
     Dates: start: 20190320, end: 20190322
  2. LOSARTAN. [Suspect]
     Active Substance: LOSARTAN
     Indication: ANGIOEDEMA
     Dates: start: 20190201, end: 20190322

REACTIONS (3)
  - Cough [None]
  - Angioedema [None]
  - Pulmonary congestion [None]

NARRATIVE: CASE EVENT DATE: 20190322
